FAERS Safety Report 7583452-8 (Version None)
Quarter: 2011Q2

REPORT INFORMATION
  Report Type: 
  Country: None (occurrence: None)
  Receive Date: 20110630
  Receipt Date: 20110617
  Transmission Date: 20111010
  Serious: Yes (Death, Life-Threatening, Hospitalization, Other)
  Sender: FDA-Public Use
  Company Number: DE-ROCHE-576707

PATIENT
  Sex: Male
  Weight: 78 kg

DRUGS (6)
  1. PANTOPRAZOLE [Concomitant]
     Indication: OESOPHAGITIS
     Route: 048
     Dates: end: 20080714
  2. PEGINTERFERON ALFA-2A [Suspect]
     Route: 058
     Dates: start: 20080508, end: 20080708
  3. RIBAVIRIN [Concomitant]
     Route: 048
     Dates: start: 20080508, end: 20080708
  4. SPIRONOLACTONE [Concomitant]
     Indication: ASCITES
     Route: 048
     Dates: end: 20080714
  5. TORSEMIDE [Concomitant]
     Indication: ASCITES
     Route: 048
     Dates: end: 20080714
  6. PROPRANOLOL [Concomitant]
     Indication: HEPATIC CIRRHOSIS
     Dosage: DRUG NAME REPORTED: PROPANOLOL
     Route: 048

REACTIONS (10)
  - SEPSIS [None]
  - ARTHRALGIA [None]
  - MULTI-ORGAN FAILURE [None]
  - EROSIVE DUODENITIS [None]
  - PNEUMONIA ASPIRATION [None]
  - HEPATIC CIRRHOSIS [None]
  - ANAEMIA [None]
  - AMMONIA INCREASED [None]
  - OESOPHAGEAL VARICES HAEMORRHAGE [None]
  - GASTRIC ULCER [None]
